FAERS Safety Report 5494548-9 (Version None)
Quarter: 2007Q4

REPORT INFORMATION
  Report Type: 
  Country: None (occurrence: None)
  Receive Date: 20071022
  Receipt Date: 20071013
  Transmission Date: 20080405
  Serious: Yes (Other)
  Sender: FDA-Public Use
  Company Number: 2007SP020799

PATIENT
  Age: 54 Year
  Sex: Female

DRUGS (4)
  1. PEG-INTRON [Suspect]
     Indication: HEPATITIS B
     Dosage: SC
     Route: 058
     Dates: start: 20071002
  2. PEG-INTRON [Suspect]
     Indication: HEPATITIS C
     Dosage: SC
     Route: 058
     Dates: start: 20071002
  3. RIBAVIRIN [Suspect]
     Indication: HEPATITIS B
     Dosage: PO
     Route: 048
     Dates: start: 20071002
  4. RIBAVIRIN [Suspect]
     Indication: HEPATITIS C
     Dosage: PO
     Route: 048
     Dates: start: 20071002

REACTIONS (16)
  - ANXIETY [None]
  - COLD SWEAT [None]
  - CRYING [None]
  - DEHYDRATION [None]
  - DEPRESSION [None]
  - DIZZINESS [None]
  - DYSGEUSIA [None]
  - EAR INFECTION [None]
  - INFLUENZA [None]
  - INSOMNIA [None]
  - MIGRAINE [None]
  - MUSCLE SPASMS [None]
  - NAUSEA [None]
  - PAIN IN EXTREMITY [None]
  - PHARYNGEAL OEDEMA [None]
  - VOMITING [None]
